FAERS Safety Report 5833110-2 (Version None)
Quarter: 2008Q3

REPORT INFORMATION
  Report Type: 
  Country: None (occurrence: None)
  Receive Date: 20080805
  Receipt Date: 20080725
  Transmission Date: 20090109
  Serious: Yes (Hospitalization)
  Sender: FDA-Public Use
  Company Number: US-ASTRAZENECA-2008AC01869

PATIENT
  Age: 46 Year
  Sex: Female

DRUGS (8)
  1. ESOMEPRAZOLE [Suspect]
  2. CITALOPRAM HYDROBROMIDE [Interacting]
     Indication: DEPRESSION
  3. FLUCONAZOLE [Interacting]
  4. DEXAMETHASONE [Concomitant]
  5. ZOLPIDEM CONTROLLED RELEASE [Concomitant]
     Dosage: NIGHTLY
  6. LOSARTAN/HYDROCHLOROTHIAZIDE [Concomitant]
     Dosage: 50MG/12.5MG
  7. DAPSONE [Concomitant]
  8. ACYCLOVIR [Concomitant]

REACTIONS (2)
  - DRUG INTERACTION [None]
  - SEROTONIN SYNDROME [None]
